FAERS Safety Report 6110559-4 (Version None)
Quarter: 2009Q1

REPORT INFORMATION
  Report Type: 
  Country: None (occurrence: None)
  Receive Date: 20090310
  Receipt Date: 20090226
  Transmission Date: 20090719
  Serious: Yes (Hospitalization, Disabling, Other)
  Sender: FDA-Public Use
  Company Number: PHHY2009JP05617

PATIENT
  Age: 74 Year
  Sex: Female

DRUGS (2)
  1. LOCHOL [Suspect]
     Indication: DYSLIPIDAEMIA
     Dosage: 30MG PER DAY
     Route: 048
     Dates: start: 20081225, end: 20090202
  2. LOCHOL [Suspect]
     Indication: HYPERCHOLESTEROLAEMIA

REACTIONS (10)
  - ALANINE AMINOTRANSFERASE INCREASED [None]
  - ASPARTATE AMINOTRANSFERASE INCREASED [None]
  - BILE DUCT STONE [None]
  - CHOLELITHIASIS [None]
  - DECREASED APPETITE [None]
  - GAMMA-GLUTAMYLTRANSFERASE INCREASED [None]
  - HEPATIC FUNCTION ABNORMAL [None]
  - HEPATITIS [None]
  - HYPERBILIRUBINAEMIA [None]
  - MALAISE [None]
